FAERS Safety Report 9541832 (Version 3)
Quarter: 2013Q4

REPORT INFORMATION
  Report Type: Report from Study
  Country: BR (occurrence: BR)
  Receive Date: 20130923
  Receipt Date: 20131105
  Transmission Date: 20140711
  Serious: Yes (Life-Threatening, Other)
  Sender: FDA-Public Use
  Company Number: PHHY2013BR105193

PATIENT
  Age: 66 Year
  Sex: Female
  Weight: 48.9 kg

DRUGS (3)
  1. DIOVAN TRIPLE [Suspect]
     Indication: HYPERTENSION
     Dosage: 1 DF (160 MG VALS, 5 MG AMLO AND 12.5 MG HCT), DAILY
     Route: 048
     Dates: start: 20130910
  2. CITALOPRAM [Concomitant]
     Indication: DEPRESSION
     Dosage: 0.5 DF, UNK
     Route: 048
  3. RIVOTRIL [Concomitant]
     Indication: SLEEP DISORDER
     Dosage: 2 DRP, PRN
     Route: 048

REACTIONS (31)
  - Apparent death [Recovered/Resolved]
  - Hypotension [Recovered/Resolved]
  - Hepatic pain [Recovered/Resolved]
  - Dysgeusia [Recovered/Resolved]
  - Feeling hot [Recovered/Resolved]
  - Formication [Recovering/Resolving]
  - Hypoaesthesia [Recovering/Resolving]
  - Vein disorder [Recovered/Resolved]
  - Flatulence [Recovered/Resolved]
  - Eructation [Recovered/Resolved]
  - Balance disorder [Recovered/Resolved]
  - Head discomfort [Recovered/Resolved]
  - Weight decreased [Recovered/Resolved]
  - Pruritus generalised [Not Recovered/Not Resolved]
  - Limb discomfort [Recovering/Resolving]
  - Scratch [Recovered/Resolved]
  - Pallor [Recovered/Resolved]
  - Eye pruritus [Recovered/Resolved]
  - Nasal discomfort [Recovered/Resolved]
  - Emotional disorder [Unknown]
  - Asthenia [Recovered/Resolved]
  - Myalgia [Recovered/Resolved]
  - Nausea [Recovered/Resolved]
  - Decreased appetite [Recovered/Resolved]
  - Muscle spasms [Recovered/Resolved]
  - Vomiting [Recovered/Resolved]
  - Abdominal pain [Recovered/Resolved]
  - Headache [Recovered/Resolved]
  - Pain in extremity [Recovering/Resolving]
  - Fatigue [Recovered/Resolved]
  - Pruritus [Unknown]
